FAERS Safety Report 14573356 (Version 4)
Quarter: 2019Q2

REPORT INFORMATION
  Report Type: Spontaneous
  Country: JP (occurrence: JP)
  Receive Date: 20180226
  Receipt Date: 20190420
  Transmission Date: 20190711
  Serious: Yes (Death, Life-Threatening, Other)
  Sender: FDA-Public Use
  Company Number: JP-UNITED THERAPEUTICS-UNT-2017-017762

PATIENT
  Age: 35 Year
  Sex: Female
  Weight: 44 kg

DRUGS (21)
  1. REMODULIN [Suspect]
     Active Substance: TREPROSTINIL
     Dosage: 0.100 ?G/KG, CONTINUING
     Route: 041
     Dates: start: 20150714
  2. REMODULIN [Suspect]
     Active Substance: TREPROSTINIL
     Dosage: 0.1778 ?G/KG, CONTINUING
     Route: 041
     Dates: start: 20150717
  3. LASIX [Concomitant]
     Active Substance: FUROSEMIDE
     Indication: VENTRICULAR SEPTAL DEFECT
  4. ALDACTONE A [Concomitant]
     Active Substance: SPIRONOLACTONE
     Indication: VENTRICULAR SEPTAL DEFECT
  5. REMODULIN [Suspect]
     Active Substance: TREPROSTINIL
     Indication: VENTRICULAR SEPTAL DEFECT
     Dosage: 0.0125 ?G/KG, CONTINUING
     Route: 041
  6. REMODULIN [Suspect]
     Active Substance: TREPROSTINIL
     Dosage: 0.025 ?G/KG, CONTINUING
     Route: 041
     Dates: start: 20150711
  7. REMODULIN [Suspect]
     Active Substance: TREPROSTINIL
     Dosage: 0.140 ?G/KG, CONTINUING
     Route: 041
     Dates: start: 20150718
  8. TRACLEER [Concomitant]
     Active Substance: BOSENTAN
     Indication: VENTRICULAR SEPTAL DEFECT
  9. REMODULIN [Suspect]
     Active Substance: TREPROSTINIL
     Indication: PULMONARY ARTERIAL HYPERTENSION
     Dosage: 0.0625 ?G/KG, CONTINUING
     Route: 041
     Dates: start: 20150710, end: 20150719
  10. REMODULIN [Suspect]
     Active Substance: TREPROSTINIL
     Dosage: UNK
     Route: 041
     Dates: start: 20150713
  11. REMODULIN [Suspect]
     Active Substance: TREPROSTINIL
     Dosage: 0.160 ?G/KG, CONTINUING
     Route: 041
     Dates: start: 201507
  12. REVATIO [Concomitant]
     Active Substance: SILDENAFIL CITRATE
     Indication: VENTRICULAR SEPTAL DEFECT
  13. ALDACTONE A [Concomitant]
     Active Substance: SPIRONOLACTONE
     Indication: PULMONARY ARTERIAL HYPERTENSION
     Dosage: UNK
     Route: 048
     Dates: end: 20150719
  14. TRACLEER [Concomitant]
     Active Substance: BOSENTAN
     Indication: PULMONARY ARTERIAL HYPERTENSION
     Dosage: UNK
     Route: 048
     Dates: start: 201208, end: 201507
  15. REMODULIN [Suspect]
     Active Substance: TREPROSTINIL
     Dosage: 0.050 ?G/KG, CONTINUING
     Route: 041
     Dates: start: 20150712
  16. LANIRAPID [Concomitant]
     Active Substance: METILDIGOXIN
     Indication: PRODUCT USED FOR UNKNOWN INDICATION
     Dosage: UNK
     Route: 048
     Dates: start: 20150713, end: 20150719
  17. LENDORMIN [Concomitant]
     Active Substance: BROTIZOLAM
     Indication: PRODUCT USED FOR UNKNOWN INDICATION
     Dosage: UNK
     Route: 048
     Dates: end: 20150719
  18. REMODULIN [Suspect]
     Active Substance: TREPROSTINIL
     Dosage: 0.170 ?G/KG, CONTINUING
     Route: 041
     Dates: start: 20150715
  19. REVATIO [Concomitant]
     Active Substance: SILDENAFIL CITRATE
     Indication: PULMONARY ARTERIAL HYPERTENSION
     Dosage: UNK
     Route: 048
     Dates: start: 200906, end: 201507
  20. LASIX [Concomitant]
     Active Substance: FUROSEMIDE
     Indication: PULMONARY ARTERIAL HYPERTENSION
     Dosage: UNK
     Route: 048
     Dates: start: 20150713, end: 20150719
  21. LOXOPROFEN                         /00890702/ [Concomitant]
     Active Substance: LOXOPROFEN
     Indication: PRODUCT USED FOR UNKNOWN INDICATION
     Dosage: UNK
     Route: 048
     Dates: end: 20150719

REACTIONS (6)
  - Blood pressure decreased [Fatal]
  - Septic shock [Fatal]
  - Condition aggravated [Fatal]
  - Cardiac failure [Fatal]
  - Device related infection [Fatal]
  - Pneumonia [Fatal]

NARRATIVE: CASE EVENT DATE: 20150716
